FAERS Safety Report 11423796 (Version 1)
Quarter: 2015Q3

REPORT INFORMATION
  Report Type: Spontaneous
  Country: US (occurrence: US)
  Receive Date: 20150827
  Receipt Date: 20150827
  Transmission Date: 20151125
  Serious: No
  Sender: FDA-Public Use
  Company Number: US-JNJFOC-20150300845

PATIENT
  Age: 46 Year
  Sex: Female
  Weight: 47.63 kg

DRUGS (2)
  1. CHILDRENS MOTRIN [Suspect]
     Active Substance: IBUPROFEN
     Route: 048
  2. CHILDRENS MOTRIN [Suspect]
     Active Substance: IBUPROFEN
     Indication: HEADACHE
     Dosage: 3 TEASPOONS JUST ONCE
     Route: 048

REACTIONS (1)
  - Wrong drug administered [Unknown]
